FAERS Safety Report 4594391-9 (Version None)
Quarter: 2005Q1

REPORT INFORMATION
  Report Type: 
  Country: None (occurrence: None)
  Receive Date: 20050301
  Receipt Date: 20041221
  Transmission Date: 20050727
  Serious: No
  Sender: FDA-Public Use
  Company Number: US-GLAXOSMITHKLINE-A0538236A

PATIENT
  Age: 50 Year
  Sex: Male

DRUGS (2)
  1. VALTREX [Suspect]
     Indication: ILL-DEFINED DISORDER
     Dosage: 1000MG PER DAY
     Route: 048
  2. EYE DROPS [Concomitant]
     Route: 065

REACTIONS (3)
  - COORDINATION ABNORMAL [None]
  - PRURITUS GENERALISED [None]
  - SKIN LESION [None]
